FAERS Safety Report 4894813-X (Version None)
Quarter: 2006Q1

REPORT INFORMATION
  Report Type: 
  Country: None (occurrence: None)
  Receive Date: 20060127
  Receipt Date: 20060127
  Transmission Date: 20060701
  Serious: No
  Sender: FDA-Public Use
  Company Number: None

PATIENT
  Age: 42 Year
  Sex: Female
  Weight: 71.2147 kg

DRUGS (1)
  1. TRAMADOL 30 MG [Suspect]
     Indication: MUSCLE SPASMS
     Dosage: 30 MG TWICE DAILT

REACTIONS (2)
  - DRY MOUTH [None]
  - SEDATION [None]
